FAERS Safety Report 7077972-2 (Version None)
Quarter: 2010Q4

REPORT INFORMATION
  Report Type: 
  Country: None (occurrence: None)
  Receive Date: 20101101
  Receipt Date: 20101026
  Transmission Date: 20110411
  Serious: Yes (Death)
  Sender: FDA-Public Use
  Company Number: US-GILEAD-2010-0032953

PATIENT
  Age: 41 Year
  Sex: Male
  Weight: 131.21 kg

DRUGS (13)
  1. LETAIRIS [Suspect]
     Indication: PULMONARY ARTERIAL HYPERTENSION
     Route: 048
     Dates: start: 20100210
  2. REMODULIN [Concomitant]
  3. OXYGEN [Concomitant]
  4. WARFARIN [Concomitant]
  5. LASIX [Concomitant]
  6. SIMVASTATIN [Concomitant]
  7. NORVASC [Concomitant]
  8. LISINOPRIL [Concomitant]
  9. DIGOXIN [Concomitant]
  10. HYDROCODONE BITARTRATE + ACETAMINOPHEN [Concomitant]
  11. ADCIRCA [Concomitant]
  12. PLO GEL [Concomitant]
  13. KLOR-CON [Concomitant]

REACTIONS (1)
  - CARDIAC ARREST [None]
